FAERS Safety Report 18897986 (Version 1)
Quarter: 2021Q1

REPORT INFORMATION
  Report Type: Other
  Country: US (occurrence: US)
  Receive Date: 20210216
  Receipt Date: 20210216
  Transmission Date: 20210420
  Serious: Yes (Hospitalization)
  Sender: FDA-Public Use
  Company Number: US-ROCHE-2759730

PATIENT
  Age: 81 Year
  Sex: Female
  Weight: 77.18 kg

DRUGS (1)
  1. LUCENTIS [Suspect]
     Active Substance: RANIBIZUMAB
     Indication: NEOVASCULAR AGE-RELATED MACULAR DEGENERATION
     Route: 050
     Dates: start: 20201130, end: 20201130

REACTIONS (9)
  - Memory impairment [Recovering/Resolving]
  - Heart rate increased [Unknown]
  - Blood pressure fluctuation [Recovered/Resolved]
  - Memory impairment [Unknown]
  - Feeling abnormal [Unknown]
  - Stress [Unknown]
  - Adrenal disorder [Unknown]
  - Balance disorder [Recovering/Resolving]
  - Insomnia [Recovering/Resolving]

NARRATIVE: CASE EVENT DATE: 20201201
